FAERS Safety Report 5670134-2 (Version None)
Quarter: 2008Q1

REPORT INFORMATION
  Report Type: 
  Country: None (occurrence: None)
  Receive Date: 20080312
  Receipt Date: 20080305
  Transmission Date: 20080703
  Serious: Yes (Death)
  Sender: FDA-Public Use
  Company Number: 114-C5013-07070495

PATIENT
  Age: 67 Year
  Sex: Male

DRUGS (3)
  1. CC-5013 (LENALIDOMIDE) [Suspect]
     Indication: MULTIPLE MYELOMA
     Dosage: 25 MG, DAILY, ORAL
     Route: 048
     Dates: start: 20070426, end: 20070628
  2. TRAMADOL HCL [Concomitant]
  3. DURAGESIC-100 [Concomitant]

REACTIONS (5)
  - HAEMOGLOBIN DECREASED [None]
  - LEUKOPENIA [None]
  - MALIGNANT NEOPLASM PROGRESSION [None]
  - MULTIPLE MYELOMA [None]
  - THROMBOCYTOPENIA [None]
